FAERS Safety Report 6879607-8 (Version None)
Quarter: 2010Q2

REPORT INFORMATION
  Report Type: 
  Country: None (occurrence: None)
  Receive Date: 20100625
  Receipt Date: 20090702
  Transmission Date: 20101027
  Serious: Yes (Other)
  Sender: FDA-Public Use
  Company Number: 2009220375

PATIENT
  Age: 51 Year
  Sex: Female

DRUGS (9)
  1. ESTRING (ESTRADIOL) VIGINAL DELIVERY SYSTEM [Suspect]
     Indication: HORMONE REPLACEMENT THERAPY
     Dosage: VAGINAL
     Route: 067
     Dates: start: 20010101
  2. CENESTIN [Suspect]
     Indication: HORMONE REPLACEMENT THERAPY
     Dates: start: 20020801, end: 20030801
  3. MENEST [Suspect]
     Indication: HORMONE REPLACEMENT THERAPY
     Dates: start: 20030901, end: 20040101
  4. PROMETRIUM [Suspect]
     Indication: HORMONE REPLACEMENT THERAPY
     Dates: start: 20020901, end: 20040401
  5. ESTRATEST [Suspect]
     Indication: HORMONE REPLACEMENT THERAPY
     Dates: start: 20020701, end: 20020801
  6. VAGIFEM [Suspect]
     Indication: HORMONE REPLACEMENT THERAPY
     Dates: start: 20020101, end: 20030101
  7. FEMRING [Suspect]
     Indication: HORMONE REPLACEMENT THERAPY
     Dates: start: 20031201
  8. PROSOM (ESTAZOLAM) [Concomitant]
  9. WELLBUTRIN [Concomitant]

REACTIONS (1)
  - BREAST CANCER [None]
